FAERS Safety Report 19605525 (Version 2)
Quarter: 2021Q4

REPORT INFORMATION
  Report Type: Spontaneous
  Country: AU (occurrence: AU)
  Receive Date: 20210723
  Receipt Date: 20211108
  Transmission Date: 20220304
  Serious: Yes (Other)
  Sender: FDA-Public Use
  Company Number: AU-TEVA-2021-AU-1934221

PATIENT
  Age: 75 Year
  Sex: Female

DRUGS (2)
  1. RASAGILINE MESYLATE [Interacting]
     Active Substance: RASAGILINE MESYLATE
     Route: 065
  2. OXYCODONE HYDROCHLORIDE [Interacting]
     Active Substance: OXYCODONE HYDROCHLORIDE
     Route: 065

REACTIONS (6)
  - Unresponsive to stimuli [Unknown]
  - Drug interaction [Unknown]
  - Lethargy [Unknown]
  - Somnolence [Unknown]
  - Fall [Unknown]
  - Back injury [Unknown]

NARRATIVE: CASE EVENT DATE: 20210409
